FAERS Safety Report 7141662-8 (Version None)
Quarter: 2010Q4

REPORT INFORMATION
  Report Type: 
  Country: None (occurrence: None)
  Receive Date: 20101203
  Receipt Date: 20101203
  Transmission Date: 20110411
  Serious: Yes (Disabling)
  Sender: FDA-Public Use
  Company Number: None

PATIENT
  Age: 68 Year
  Sex: Female
  Weight: 76.2043 kg

DRUGS (2)
  1. CIPROFLOXACIN 250 MG WOLTERS KLUWER HEALTH, INC [Suspect]
     Indication: DIVERTICULITIS
     Dosage: TWICE DAILY 250 MG TWICE DAILY #10
     Dates: start: 20101025, end: 20101030
  2. CIPROFLOXACIN 250 MG WOLTERS KLUWER HEALTH, INC [Suspect]
     Dosage: 250 MG TWICE DAILY #10
     Dates: start: 20101029, end: 20101104

REACTIONS (15)
  - ARTHRALGIA [None]
  - ASTHENIA [None]
  - COUGH [None]
  - DECREASED APPETITE [None]
  - DIARRHOEA [None]
  - HALLUCINATION [None]
  - INSOMNIA [None]
  - MOVEMENT DISORDER [None]
  - MUSCULOSKELETAL PAIN [None]
  - MYALGIA [None]
  - NAUSEA [None]
  - PAIN IN EXTREMITY [None]
  - RESTLESSNESS [None]
  - TENDON DISORDER [None]
  - WEIGHT BEARING DIFFICULTY [None]
